FAERS Safety Report 5005838-8 (Version None)
Quarter: 2006Q2

REPORT INFORMATION
  Report Type: 
  Country: None (occurrence: None)
  Receive Date: 20060515
  Receipt Date: 20060501
  Transmission Date: 20061013
  Serious: Yes (Hospitalization)
  Sender: FDA-Public Use
  Company Number: 2006S1003145

PATIENT
  Age: 63 Year
  Sex: Female
  Weight: 99.7913 kg

DRUGS (23)
  1. CEP-25608 [Suspect]
     Indication: BREAKTHROUGH PAIN
     Dosage: 200 UG; PRN; BUCCA
     Route: 002
     Dates: start: 20051212, end: 20060331
  2. AMITRIPTYLINE HCL [Suspect]
     Indication: INSOMNIA
     Dosage: SEE IMAGE
     Route: 048
     Dates: start: 20060301, end: 20060307
  3. AMITRIPTYLINE HCL [Suspect]
     Indication: INSOMNIA
     Dosage: SEE IMAGE
     Route: 048
     Dates: start: 20060309, end: 20060309
  4. AMITRIPTYLINE HCL [Suspect]
     Indication: INSOMNIA
     Dosage: SEE IMAGE
     Route: 048
     Dates: start: 20060310, end: 20060321
  5. METHADONE HCL [Suspect]
     Indication: PAIN
     Dosage: SEE IMAGE
     Route: 048
     Dates: start: 20050722
  6. FUROSEMIDE [Concomitant]
  7. POTASSIUM [Concomitant]
  8. ACETYLSALICYLIC ACID SRT [Concomitant]
  9. GLYBURIDE [Concomitant]
  10. DOCUSATE [Concomitant]
  11. LISINOPRIL [Concomitant]
  12. CARBAMAZEPINE [Concomitant]
  13. ROSIGLITAZONE MALEATE [Concomitant]
  14. INSULIN GLARGINE [Concomitant]
  15. CITALOPRAM HYDROBROMIDE [Concomitant]
  16. AMLODIPINE [Concomitant]
  17. METHOCARBAMOL [Concomitant]
  18. PARACETAMOL/HYDROCODONE BITARTRATE [Concomitant]
  19. GABAPENTIN [Concomitant]
  20. CLONAZEPAM [Concomitant]
  21. BUSPIRONE [Concomitant]
  22. METFORMIN [Concomitant]
  23. TRAVOPROST [Concomitant]

REACTIONS (7)
  - BLOOD POTASSIUM INCREASED [None]
  - BLOOD SODIUM DECREASED [None]
  - DRUG INTERACTION [None]
  - LETHARGY [None]
  - LISTLESS [None]
  - MIOSIS [None]
  - SOMNOLENCE [None]
